FAERS Safety Report 11926480 (Version 1)
Quarter: 2016Q1

REPORT INFORMATION
  Report Type: Spontaneous
  Country: US (occurrence: None)
  Receive Date: 20160115
  Receipt Date: 20160115
  Transmission Date: 20160526
  Serious: No
  Sender: FDA-Public Use
  Company Number: None

PATIENT
  Age: 10 Year
  Sex: Male

DRUGS (9)
  1. LISINOPRIL. [Concomitant]
     Active Substance: LISINOPRIL
  2. AFINITOR [Suspect]
     Active Substance: EVEROLIMUS
     Indication: TUBEROUS SCLEROSIS
     Route: 048
     Dates: start: 20150228
  3. GABAPENTIN. [Concomitant]
     Active Substance: GABAPENTIN
  4. RISPERIDONE. [Concomitant]
     Active Substance: RISPERIDONE
  5. TRILEPTAL [Concomitant]
     Active Substance: OXCARBAZEPINE
  6. OXCARBAZEPINE. [Concomitant]
     Active Substance: OXCARBAZEPINE
  7. CELEXA [Concomitant]
     Active Substance: CITALOPRAM HYDROBROMIDE
  8. ALBUTEROL. [Concomitant]
     Active Substance: ALBUTEROL
  9. DEXMETHYLPHENIDATE [Concomitant]
     Active Substance: DEXMETHYLPHENIDATE HYDROCHLORIDE

REACTIONS (2)
  - Croup infectious [None]
  - Therapy cessation [None]

NARRATIVE: CASE EVENT DATE: 20151231
